FAERS Safety Report 13124294 (Version 3)
Quarter: 2017Q2

REPORT INFORMATION
  Report Type: Spontaneous
  Country: US (occurrence: US)
  Receive Date: 20170118
  Receipt Date: 20170414
  Transmission Date: 20170830
  Serious: Yes (Other)
  Sender: FDA-Public Use
  Company Number: US-TEVA-724373ACC

PATIENT
  Sex: Female

DRUGS (1)
  1. PARAGARD T 380A [Suspect]
     Active Substance: COPPER
     Route: 065
     Dates: start: 20110214, end: 20161122

REACTIONS (17)
  - Muscle spasms [Unknown]
  - Weight increased [Unknown]
  - Alopecia [Unknown]
  - Dyspareunia [Unknown]
  - Autoimmune thyroiditis [Unknown]
  - Back pain [Unknown]
  - Hypersensitivity [Unknown]
  - Headache [Unknown]
  - Fatigue [Unknown]
  - Arthralgia [Unknown]
  - Metal poisoning [Unknown]
  - Tinnitus [Unknown]
  - Asthenia [Unknown]
  - Device breakage [Unknown]
  - Embedded device [Recovered/Resolved]
  - Pelvic pain [Unknown]
  - Gastrointestinal disorder [Unknown]
